FAERS Safety Report 15000157 (Version 1)
Quarter: 2018Q2

REPORT INFORMATION
  Report Type: Spontaneous
  Country: GB (occurrence: GB)
  Receive Date: 20180612
  Receipt Date: 20180612
  Transmission Date: 20180711
  Serious: Yes (Other)
  Sender: FDA-Public Use
  Company Number: GB-009507513-1806GBR002285

PATIENT
  Age: 49 Year
  Sex: Female
  Weight: 50.8 kg

DRUGS (2)
  1. NEXPLANON [Suspect]
     Active Substance: ETONOGESTREL
     Indication: CONTRACEPTION
     Dosage: UNK
     Route: 051
     Dates: start: 20180414, end: 20180428
  2. OMEPRAZOLE. [Concomitant]
     Active Substance: OMEPRAZOLE
     Dosage: 20 MG, UNK

REACTIONS (4)
  - Implant site abscess [Recovered/Resolved]
  - Implant site infection [Recovered/Resolved]
  - Allergic reaction to excipient [Recovered/Resolved]
  - Implant site irritation [Recovered/Resolved]

NARRATIVE: CASE EVENT DATE: 20180414
